FAERS Safety Report 7674530-3 (Version None)
Quarter: 2011Q3

REPORT INFORMATION
  Report Type: 
  Country: None (occurrence: None)
  Receive Date: 20110810
  Receipt Date: 20110801
  Transmission Date: 20111222
  Serious: Yes (Other)
  Sender: FDA-Public Use
  Company Number: PHHY2011FR70161

PATIENT
  Sex: Female

DRUGS (3)
  1. SOMATULINA [Concomitant]
     Dosage: UNK UKN, UNK
     Dates: start: 20110719
  2. SANDOSTATIN [Suspect]
     Dosage: 20 MG, QMO
     Route: 030
     Dates: start: 20110513
  3. SANDOSTATIN [Suspect]
     Dosage: 20 MG, QMO
     Route: 030
     Dates: start: 20070101

REACTIONS (11)
  - HYPOTENSION [None]
  - TINNITUS [None]
  - MALAISE [None]
  - CHEST PAIN [None]
  - PRESYNCOPE [None]
  - DIZZINESS [None]
  - FACE OEDEMA [None]
  - ERYTHEMA [None]
  - OEDEMA PERIPHERAL [None]
  - LOSS OF CONSCIOUSNESS [None]
  - FALL [None]
